FAERS Safety Report 4867080-0 (Version None)
Quarter: 2005Q4

REPORT INFORMATION
  Report Type: 
  Country: None (occurrence: None)
  Receive Date: 20051222
  Receipt Date: 20051207
  Transmission Date: 20060501
  Serious: Yes (Other)
  Sender: FDA-Public Use
  Company Number: DSA_26890_2005

PATIENT
  Age: 29 Year
  Sex: Female

DRUGS (8)
  1. TEMESTA [Suspect]
     Indication: DEPRESSION
     Dosage: 1 MG Q DAY SL
     Route: 060
     Dates: start: 20050601, end: 20050620
  2. FLUCTINE [Suspect]
     Indication: DEPRESSION
     Dosage: 20 MG Q DAY PO
     Route: 048
     Dates: start: 20050601, end: 20050619
  3. FLUCTINE [Suspect]
     Dosage: 20 MG BID PO
     Route: 048
     Dates: start: 20050620, end: 20050625
  4. LEXOTANIL [Suspect]
     Indication: DEPRESSION
     Dosage: 2.5 MG Q DAY PO
     Route: 048
     Dates: start: 20050601, end: 20050620
  5. ZOLPIDEM TARTRATE [Suspect]
     Indication: DEPRESSION
     Dosage: 10 MG Q DAY PO
     Route: 048
     Dates: start: 20050620, end: 20050625
  6. TRANXILIUM [Suspect]
     Indication: DEPRESSION
     Dosage: 5 MG BID PO
     Route: 048
     Dates: start: 20050601, end: 20050619
  7. TRANXILIUM [Suspect]
     Dosage: 10 MG BID PO
     Route: 048
     Dates: start: 20050620, end: 20050625
  8. ALCOHOL [Suspect]

REACTIONS (2)
  - ABORTION INDUCED [None]
  - DRUG EXPOSURE DURING PREGNANCY [None]
